FAERS Safety Report 6114807-6 (Version None)
Quarter: 2009Q1

REPORT INFORMATION
  Report Type: 
  Country: None (occurrence: None)
  Receive Date: 20090311
  Receipt Date: 20080220
  Transmission Date: 20090719
  Serious: Yes (Other)
  Sender: FDA-Public Use
  Company Number: US200802003618

PATIENT
  Age: 84 Year
  Sex: Male

DRUGS (2)
  1. GEMZAR [Suspect]
     Indication: MESOTHELIOMA
  2. CARBOPLATIN [Concomitant]

REACTIONS (1)
  - MALIGNANT NEOPLASM PROGRESSION [None]
